FAERS Safety Report 17006165 (Version 3)
Quarter: 2020Q1

REPORT INFORMATION
  Report Type: Report from Study
  Country: CO (occurrence: CO)
  Receive Date: 20191107
  Receipt Date: 20200122
  Transmission Date: 20200409
  Serious: Yes (Hospitalization, Other)
  Sender: FDA-Public Use
  Company Number: CO-AMGEN-COLSL2019166037

PATIENT
  Age: 49 Year
  Sex: Male

DRUGS (3)
  1. VECTIBIX [Suspect]
     Active Substance: PANITUMUMAB
     Dosage: 564 MILLIGRAM, Q2WK
     Route: 042
     Dates: start: 2019, end: 20191025
  2. VECTIBIX [Suspect]
     Active Substance: PANITUMUMAB
     Indication: COLORECTAL CANCER METASTATIC
     Dosage: 100 MILLIGRAM, Q2WK
     Route: 042
     Dates: start: 20190927, end: 2019
  3. VECTIBIX [Suspect]
     Active Substance: PANITUMUMAB
     Dosage: 456 MILLIGRAM, Q2WK
     Route: 042
     Dates: start: 2019, end: 2019

REACTIONS (7)
  - General physical health deterioration [Not Recovered/Not Resolved]
  - Flushing [Recovering/Resolving]
  - Diarrhoea [Recovering/Resolving]
  - Intestinal perforation [Recovering/Resolving]
  - Abdominal pain [Recovering/Resolving]
  - Dry skin [Not Recovered/Not Resolved]
  - Rash [Recovering/Resolving]

NARRATIVE: CASE EVENT DATE: 2019
